FAERS Safety Report 7777418-2 (Version None)
Quarter: 2011Q3

REPORT INFORMATION
  Report Type: 
  Country: None (occurrence: None)
  Receive Date: 20110926
  Receipt Date: 20110913
  Transmission Date: 20111222
  Serious: Yes (Other)
  Sender: FDA-Public Use
  Company Number: PH-NOVOPROD-333887

PATIENT

DRUGS (11)
  1. LEVOTHYROXINE SODIUM [Concomitant]
     Dosage: 25-100 MCG, QD
     Route: 048
  2. VICTOZA [Suspect]
     Indication: DIABETES MELLITUS
     Dosage: 0.6 MG, QD
     Dates: start: 20110602, end: 20110618
  3. L-CARNITHINE [Concomitant]
     Dosage: 1000 MG, QD
     Route: 048
     Dates: start: 20110602, end: 20110618
  4. LEVOTHYROXINE SODIUM [Concomitant]
     Dosage: 100 MG, UNK
  5. METFORMIN HCL [Concomitant]
     Dosage: 850 MG, BID
  6. LEXATIN                            /00424801/ [Concomitant]
     Dosage: 1.5 MG, BID IF NEEDED
  7. GLUCOSAMINE SULFATE [Concomitant]
     Dosage: 1500 MG, QD
  8. SINTROM [Concomitant]
     Dosage: 4 MG, 1/2-3/4 TABL AS INSTRUCTED AFTER BLOOD CHECKS
  9. CARVEDILOL [Concomitant]
     Dosage: 6.25 MG, QD
     Route: 048
  10. OMEPRAZOLE [Concomitant]
     Dosage: 20 MG, QD
     Route: 048
  11. VITALUX                            /00322001/ [Concomitant]

REACTIONS (2)
  - AGITATION [None]
  - HEART RATE IRREGULAR [None]
